FAERS Safety Report 12933551 (Version 1)
Quarter: 2016Q4

REPORT INFORMATION
  Report Type: Spontaneous
  Country: FR (occurrence: FR)
  Receive Date: 20161111
  Receipt Date: 20161111
  Transmission Date: 20170207
  Serious: Yes (Hospitalization)
  Sender: FDA-Public Use
  Company Number: FR-AMGEN-FRASP2016156722

PATIENT
  Age: 79 Year
  Sex: Female

DRUGS (10)
  1. DAFALGAN [Concomitant]
     Active Substance: ACETAMINOPHEN
     Dosage: 500 MG, UNK
     Route: 048
  2. MOVICOL [Concomitant]
     Active Substance: POLYETHYLENE GLYCOL 3350\POTASSIUM CHLORIDE\SODIUM BICARBONATE\SODIUM CHLORIDE
     Dosage: UNK
     Route: 048
     Dates: start: 20161001
  3. PROLIA [Suspect]
     Active Substance: DENOSUMAB
     Indication: OSTEOPOROSIS
     Dosage: 60 MG, UNK
     Route: 065
     Dates: start: 20161013
  4. ZYMAD [Concomitant]
     Active Substance: CHOLECALCIFEROL
     Dosage: 80000 IU, UNK
     Route: 048
  5. SKENAN [Concomitant]
     Active Substance: MORPHINE SULFATE
     Dosage: 10 MG, UNK
     Route: 048
     Dates: start: 20161001, end: 20161015
  6. PRONTALGINE [Concomitant]
     Active Substance: ACETAMINOPHEN\AMOBARBITAL\CAFFEINE\CODEINE PHOSPHATE
     Dosage: 2 TABLETS, BID
     Dates: start: 20160927
  7. LANSOYL [Concomitant]
     Active Substance: MINERAL OIL
     Dosage: UNK
     Dates: start: 20160927, end: 20161018
  8. MODOPAR [Concomitant]
     Active Substance: BENSERAZIDE HYDROCHLORIDE\LEVODOPA
     Dosage: 100MG/25MG
     Route: 048
  9. SIFROL [Concomitant]
     Active Substance: PRAMIPEXOLE
     Dosage: 0.52 MG, UNK
     Route: 048
  10. AZILECT [Concomitant]
     Active Substance: RASAGILINE MESYLATE
     Dosage: 1 MG, QD
     Route: 048

REACTIONS (2)
  - Hypocalcaemia [Recovering/Resolving]
  - Hypophosphataemia [Recovering/Resolving]

NARRATIVE: CASE EVENT DATE: 20161018
